FAERS Safety Report 25317752 (Version 3)
Quarter: 2025Q2

REPORT INFORMATION
  Report Type: Report from Study
  Country: JP (occurrence: JP)
  Receive Date: 20250515
  Receipt Date: 20250530
  Transmission Date: 20250716
  Serious: Yes (Life-Threatening, Hospitalization, Other)
  Sender: ALEXION PHARMACEUTICALS
  Company Number: JP-ASTRAZENECA-240007690_011820_P_1

PATIENT
  Age: 17 Year
  Weight: 28 kg

DRUGS (1)
  1. KOSELUGO [Suspect]
     Active Substance: SELUMETINIB
     Indication: Neurofibromatosis

REACTIONS (7)
  - Cardiac tamponade [Unknown]
  - Cardiac dysfunction [Unknown]
  - Dermatitis acneiform [Unknown]
  - Eczema [Recovering/Resolving]
  - Stomatitis [Unknown]
  - Oedema peripheral [Unknown]
  - Deformity thorax [Unknown]
